FAERS Safety Report 23164526 (Version 1)
Quarter: 2023Q4

REPORT INFORMATION
  Report Type: Spontaneous
  Country: US (occurrence: None)
  Receive Date: 20231108
  Receipt Date: 20231108
  Transmission Date: 20240110
  Serious: Yes (Hospitalization)
  Sender: FDA-Public Use
  Company Number: None

PATIENT
  Age: 64 Year
  Sex: Female
  Weight: 72.6 kg

DRUGS (2)
  1. LOSARTAN [Suspect]
     Active Substance: LOSARTAN
     Dosage: FREQUENCY : DAILY;?
     Route: 048
     Dates: start: 20230605, end: 20230609
  2. LOSARTAN [Concomitant]
     Active Substance: LOSARTAN
     Dates: start: 20230605, end: 20230609

REACTIONS (8)
  - Cardiac procedure complication [None]
  - Chest pain [None]
  - Dysphemia [None]
  - Palpitations [None]
  - Procedure aborted [None]
  - Cerebrovascular accident [None]
  - Drug hypersensitivity [None]
  - Adverse drug reaction [None]

NARRATIVE: CASE EVENT DATE: 20230608
